FAERS Safety Report 4270450-5 (Version None)
Quarter: 2004Q1

REPORT INFORMATION
  Report Type: 
  Country: None (occurrence: None)
  Receive Date: 20040114
  Receipt Date: 20040102
  Transmission Date: 20041129
  Serious: Yes (Hospitalization)
  Sender: FDA-Public Use
  Company Number: US-GLAXOSMITHKLINE-A0492406A

PATIENT
  Age: 55 Year
  Sex: Male
  Weight: 125.5 kg

DRUGS (5)
  1. AVANDIA [Suspect]
     Dates: start: 20000322, end: 20010610
  2. INSULIN [Concomitant]
  3. PRECOSE [Concomitant]
  4. RELAFEN [Concomitant]
  5. PRAVACHOL [Concomitant]

REACTIONS (13)
  - ARTHRALGIA [None]
  - ATRIAL FIBRILLATION [None]
  - ATRIAL FLUTTER [None]
  - CARDIAC FAILURE CONGESTIVE [None]
  - CORONARY ARTERY ATHEROSCLEROSIS [None]
  - CORONARY ARTERY DISEASE [None]
  - DIABETES MELLITUS INADEQUATE CONTROL [None]
  - HAEMOTHORAX [None]
  - HYPOTENSION [None]
  - OEDEMA PERIPHERAL [None]
  - PULMONARY OEDEMA [None]
  - RESPIRATORY TRACT CONGESTION [None]
  - VENTRICULAR DYSFUNCTION [None]
